FAERS Safety Report 14627694 (Version 1)
Quarter: 2018Q1

REPORT INFORMATION
  Report Type: Spontaneous
  Country: US (occurrence: US)
  Receive Date: 20180312
  Receipt Date: 20180312
  Transmission Date: 20180509
  Serious: Yes (Hospitalization)
  Sender: FDA-Public Use
  Company Number: US-EGALET US INC-US-2018EGA000223

PATIENT
  Age: 28 Year
  Sex: Male

DRUGS (1)
  1. OXYCODONE HYDROCHLORIDE. [Suspect]
     Active Substance: OXYCODONE HYDROCHLORIDE
     Indication: PRODUCT USED FOR UNKNOWN INDICATION
     Dosage: UNK

REACTIONS (4)
  - Toxic leukoencephalopathy [Recovered/Resolved]
  - Paroxysmal sympathetic hyperactivity [Recovered/Resolved]
  - Overdose [Unknown]
  - Drug abuse [Unknown]
